FAERS Safety Report 8270110-X (Version None)
Quarter: 2012Q2

REPORT INFORMATION
  Report Type: 
  Country: None (occurrence: None)
  Receive Date: 20120410
  Receipt Date: 20120402
  Transmission Date: 20120825
  Serious: Yes (Hospitalization)
  Sender: FDA-Public Use
  Company Number: PHFR2012GB002054

PATIENT
  Sex: Male

DRUGS (1)
  1. CLOZARIL [Suspect]
     Indication: SCHIZOPHRENIA
     Dosage: UNK UKN, UNK
     Route: 048
     Dates: start: 20030519

REACTIONS (2)
  - EMPYEMA [None]
  - SEPSIS [None]
